FAERS Safety Report 15114731 (Version 1)
Quarter: 2018Q3

REPORT INFORMATION
  Report Type: Spontaneous
  Country: DE (occurrence: DE)
  Receive Date: 20180706
  Receipt Date: 20180706
  Transmission Date: 20181010
  Serious: Yes (Other)
  Sender: FDA-Public Use
  Company Number: DE-009507513-1807DEU001582

PATIENT
  Age: 83 Year
  Sex: Female

DRUGS (2)
  1. REMERGIL [Suspect]
     Active Substance: MIRTAZAPINE
     Indication: DEPRESSION
     Dosage: 15 MG/DAY
     Route: 048
  2. ADUMBRAN [Concomitant]
     Active Substance: OXAZEPAM

REACTIONS (3)
  - Polyneuropathy [Unknown]
  - Dizziness [Unknown]
  - Fatigue [Unknown]
